FAERS Safety Report 9353925 (Version 3)
Quarter: 2013Q3

REPORT INFORMATION
  Report Type: Spontaneous
  Country: JP (occurrence: JP)
  Receive Date: 20130618
  Receipt Date: 20130806
  Transmission Date: 20140515
  Serious: Yes (Hospitalization)
  Sender: FDA-Public Use
  Company Number: JP-BAYER-2013-070241

PATIENT
  Sex: Female

DRUGS (2)
  1. BAYASPIRIN [Suspect]
     Route: 048
  2. UNFRACTIONATED HEPARIN [Concomitant]
     Dosage: UNK

REACTIONS (2)
  - Gastrointestinal haemorrhage [None]
  - Myocardial infarction [None]
